FAERS Safety Report 7585300-9 (Version None)
Quarter: 2011Q2

REPORT INFORMATION
  Report Type: 
  Country: None (occurrence: None)
  Receive Date: 20110623
  Receipt Date: 20110609
  Transmission Date: 20111010
  Serious: Yes (Other)
  Sender: FDA-Public Use
  Company Number: AUR-APL-2011-03062

PATIENT
  Sex: Male

DRUGS (2)
  1. FINASTERIDE [Suspect]
     Indication: PRODUCT USED FOR UNKNOWN INDICATION
  2. CITALOPRAM HYDROBROMIDE [Suspect]
     Indication: DEPRESSION

REACTIONS (4)
  - ANGER [None]
  - MENTAL DISORDER [None]
  - FEELING ABNORMAL [None]
  - UNEVALUABLE EVENT [None]
